FAERS Safety Report 8623170-8 (Version None)
Quarter: 2012Q3

REPORT INFORMATION
  Report Type: 
  Country: None (occurrence: None)
  Receive Date: 20120827
  Receipt Date: 20120820
  Transmission Date: 20120928
  Serious: Yes (Other)
  Sender: FDA-Public Use
  Company Number: PHHY2012BR073135

PATIENT
  Sex: Female
  Weight: 43 kg

DRUGS (1)
  1. FORMOTEROL FUMARATE [Suspect]
     Indication: BRONCHIECTASIS
     Dosage: 1 DF, BID

REACTIONS (3)
  - COUGH [None]
  - INCREASED BRONCHIAL SECRETION [None]
  - BRONCHOSPASM [None]
